FAERS Safety Report 11628021 (Version 2)
Quarter: 2015Q4

REPORT INFORMATION
  Report Type: Spontaneous
  Country: US (occurrence: US)
  Receive Date: 20151014
  Receipt Date: 20151019
  Transmission Date: 20160304
  Serious: Yes (Death, Life-Threatening, Hospitalization)
  Sender: FDA-Public Use
  Company Number: US-WEST-WARD PHARMACEUTICALS CORP.-US-H14001-15-01795

PATIENT
  Sex: Male

DRUGS (2)
  1. DEXAMETHASONE. [Suspect]
     Active Substance: DEXAMETHASONE
     Route: 065
  2. DEXAMETHASONE. [Suspect]
     Active Substance: DEXAMETHASONE
     Indication: HYPERTHYROIDISM
     Route: 065

REACTIONS (8)
  - Anuria [Unknown]
  - Renal impairment [Unknown]
  - Respiratory acidosis [Unknown]
  - Alveolar lung disease [Fatal]
  - Metabolic acidosis [Unknown]
  - Pneumocystis jirovecii pneumonia [Fatal]
  - Cardio-respiratory arrest [Fatal]
  - Oedema peripheral [Unknown]
